FAERS Safety Report 9306145 (Version 1)
Quarter: 2013Q2

REPORT INFORMATION
  Report Type: Spontaneous
  Country: US (occurrence: US)
  Receive Date: 20130523
  Receipt Date: 20130523
  Transmission Date: 20140414
  Serious: Yes (Hospitalization)
  Sender: FDA-Public Use
  Company Number: US-GLAXOSMITHKLINE-A0786565A

PATIENT
  Age: 60 Year
  Sex: Male

DRUGS (2)
  1. AVANDIA [Suspect]
     Indication: DIABETES MELLITUS
     Dosage: 4U TWICE PER DAY
     Dates: start: 2002, end: 200705
  2. ROSIGLITAZONE MALEATE [Suspect]
     Indication: DIABETES MELLITUS
     Dosage: 4MG UNKNOWN
     Route: 048

REACTIONS (2)
  - Myocardial infarction [Unknown]
  - Dyspnoea [Unknown]
